FAERS Safety Report 23081023 (Version 2)
Quarter: 2023Q4

REPORT INFORMATION
  Report Type: Report from Study
  Country: US (occurrence: US)
  Receive Date: 20231018
  Receipt Date: 20231117
  Transmission Date: 20240110
  Serious: Yes (Hospitalization, Other)
  Sender: FDA-Public Use
  Company Number: US-BAYER-2023A144660

PATIENT
  Age: 65 Year
  Sex: Male

DRUGS (1)
  1. STIVARGA [Suspect]
     Active Substance: REGORAFENIB
     Indication: Rectal cancer
     Dosage: 80 MG, QD (DAILY FOR 21 DAYS AND OFF FOR 7 DAYS)

REACTIONS (5)
  - Gait disturbance [Unknown]
  - Asthenia [Unknown]
  - Illness [Unknown]
  - Haematemesis [Unknown]
  - Urinary tract infection [Unknown]
